FAERS Safety Report 24304393 (Version 1)
Quarter: 2024Q3

REPORT INFORMATION
  Report Type: Spontaneous
  Country: GB (occurrence: GB)
  Receive Date: 20240910
  Receipt Date: 20240910
  Transmission Date: 20241017
  Serious: Yes (Disabling, Other)
  Sender: TEVA
  Company Number: GB-MHRA-TPP19337535C10348831YC1725017985792

PATIENT
  Age: 44 Year
  Sex: Female
  Weight: 70 kg

DRUGS (3)
  1. LEVOFLOXACIN [Suspect]
     Active Substance: LEVOFLOXACIN
     Dosage: AS ADVISED BY THE CONSULTANT MICROB...
     Route: 065
     Dates: start: 20240828
  2. COTRIMOXAZOLE [Concomitant]
     Active Substance: SULFAMETHOXAZOLE\TRIMETHOPRIM
     Dosage: TPP YC - PLEASE RECLASSIFY
     Dates: start: 20240828
  3. LEVOTHYROXINE [Concomitant]
     Active Substance: LEVOTHYROXINE\LEVOTHYROXINE SODIUM
     Dosage: TOTAL DOSE: 175MICO..., TPP YC - PLEASE RECLASSIFY
     Dates: start: 20230825

REACTIONS (2)
  - Arthralgia [Recovering/Resolving]
  - Tendonitis [Recovering/Resolving]
